FAERS Safety Report 5625218-1 (Version None)
Quarter: 2008Q1

REPORT INFORMATION
  Report Type: 
  Country: None (occurrence: None)
  Receive Date: 20080208
  Receipt Date: 20080129
  Transmission Date: 20080703
  Serious: Yes (Life-Threatening, Hospitalization)
  Sender: FDA-Public Use
  Company Number: TCI2007A04334

PATIENT
  Age: 63 Year
  Sex: Male

DRUGS (3)
  1. ACTOS [Suspect]
     Indication: DIABETES MELLITUS
     Dosage: 15 MG (15 MG, 1 IN 1 D) PER ORAL
     Route: 048
     Dates: start: 20070720, end: 20070820
  2. AMARYL [Concomitant]
  3. LOCHOL (FLUVASTATIN SODIUM) [Concomitant]

REACTIONS (21)
  - AZOTAEMIA [None]
  - C-REACTIVE PROTEIN INCREASED [None]
  - CARDIAC FAILURE CONGESTIVE [None]
  - DYSPNOEA [None]
  - GENERALISED OEDEMA [None]
  - HAEMATURIA [None]
  - HAEMODIALYSIS [None]
  - HEPATIC STEATOSIS [None]
  - HYDRONEPHROSIS [None]
  - HYPERKALAEMIA [None]
  - PLEURAL EFFUSION [None]
  - POSTRENAL FAILURE [None]
  - PULMONARY OEDEMA [None]
  - RENAL DISORDER [None]
  - RENAL FAILURE [None]
  - RENAL FAILURE ACUTE [None]
  - RENAL IMPAIRMENT [None]
  - RETROPERITONEAL FIBROSIS [None]
  - URINARY TRACT OBSTRUCTION [None]
  - WEIGHT INCREASED [None]
  - WHEELCHAIR USER [None]
